FAERS Safety Report 22313619 (Version 1)
Quarter: 2023Q2

REPORT INFORMATION
  Report Type: Spontaneous
  Country: US (occurrence: US)
  Receive Date: 20230512
  Receipt Date: 20230512
  Transmission Date: 20230722
  Serious: Yes (Other)
  Sender: FDA-Public Use
  Company Number: US-GILEAD-2023-0627470

PATIENT
  Age: 53 Year
  Sex: Female

DRUGS (2)
  1. TRODELVY [Suspect]
     Active Substance: SACITUZUMAB GOVITECAN-HZIY
     Indication: Breast cancer
     Dosage: CYCLE 2 25% DOSE REDUCTION
     Route: 065
     Dates: end: 20230421
  2. TRODELVY [Suspect]
     Active Substance: SACITUZUMAB GOVITECAN-HZIY
     Dosage: CYCLE 7
     Route: 065
     Dates: end: 20230421

REACTIONS (3)
  - Neutropenia [Unknown]
  - Haematuria [Not Recovered/Not Resolved]
  - Platelet count decreased [Unknown]
